FAERS Safety Report 23125229 (Version 1)
Quarter: 2023Q4

REPORT INFORMATION
  Report Type: Spontaneous
  Country: US (occurrence: None)
  Receive Date: 20231025
  Receipt Date: 20231025
  Transmission Date: 20240109
  Serious: No
  Sender: FDA-Public Use
  Company Number: None

PATIENT
  Sex: Female

DRUGS (1)
  1. GLATIRAMER ACETATE [Suspect]
     Active Substance: GLATIRAMER ACETATE
     Route: 058

REACTIONS (6)
  - Injection site pain [None]
  - Injection site pain [None]
  - Injection site erythema [None]
  - Hot flush [None]
  - Injection site nodule [None]
  - Wrong technique in device usage process [None]
